FAERS Safety Report 16497482 (Version 2)
Quarter: 2019Q3

REPORT INFORMATION
  Report Type: Spontaneous
  Country: KR (occurrence: KR)
  Receive Date: 20190628
  Receipt Date: 20190703
  Transmission Date: 20191004
  Serious: Yes (Hospitalization)
  Sender: FDA-Public Use
  Company Number: KR-009507513-1906KOR004393

PATIENT
  Sex: Female

DRUGS (1)
  1. KEYTRUDA [Suspect]
     Active Substance: PEMBROLIZUMAB
     Indication: SMALL CELL LUNG CANCER
     Dosage: UNK
     Dates: start: 20181119, end: 20181119

REACTIONS (3)
  - Product use in unapproved indication [Unknown]
  - Sensory disturbance [Unknown]
  - Adverse event [Unknown]

NARRATIVE: CASE EVENT DATE: 2018
